FAERS Safety Report 13276664 (Version 2)
Quarter: 2017Q1

REPORT INFORMATION
  Report Type: Spontaneous
  Country: US (occurrence: US)
  Receive Date: 20170228
  Receipt Date: 20170307
  Transmission Date: 20170428
  Serious: No
  Sender: FDA-Public Use
  Company Number: US-BAYER-2017-038715

PATIENT
  Age: 47 Year
  Sex: Male

DRUGS (1)
  1. CLARITIN [Suspect]
     Active Substance: LORATADINE
     Indication: ALLERGIC RESPIRATORY DISEASE
     Dosage: 2 DF, UNK

REACTIONS (4)
  - Somnolence [Unknown]
  - Drug ineffective [Unknown]
  - Palpitations [Unknown]
  - Product use issue [Unknown]
